FAERS Safety Report 7864908-7 (Version None)
Quarter: 2011Q4

REPORT INFORMATION
  Report Type: 
  Country: None (occurrence: None)
  Receive Date: 20111028
  Receipt Date: 20100916
  Transmission Date: 20120403
  Serious: No
  Sender: FDA-Public Use
  Company Number: US-GLAXOSMITHKLINE-A0881483A

PATIENT
  Age: 85 Year
  Sex: Male

DRUGS (8)
  1. VITAMIN B6 [Concomitant]
  2. VITAMIN TAB [Concomitant]
  3. GINGKO [Concomitant]
  4. LIPITOR [Concomitant]
  5. TIKOSYN [Concomitant]
  6. ADVAIR DISKUS 100/50 [Suspect]
     Indication: CHRONIC OBSTRUCTIVE PULMONARY DISEASE
     Dosage: 1PUFF TWICE PER DAY
     Route: 055
     Dates: start: 20100801
  7. VITAMIN B-12 [Concomitant]
  8. MULTIVITAMIN [Concomitant]

REACTIONS (1)
  - DRUG INEFFECTIVE [None]
